FAERS Safety Report 12051202 (Version 3)
Quarter: 2016Q1

REPORT INFORMATION
  Report Type: Spontaneous
  Country: LV (occurrence: LV)
  Receive Date: 20160209
  Receipt Date: 20160209
  Transmission Date: 20160526
  Serious: Yes (Hospitalization, Other)
  Sender: FDA-Public Use
  Company Number: CHPA2016LV001654

PATIENT
  Sex: Female

DRUGS (6)
  1. DICLOFENAC [Suspect]
     Active Substance: DICLOFENAC
     Indication: MUSCULOSKELETAL PAIN
     Route: 065
  2. IBUMETIN [Suspect]
     Active Substance: IBUPROFEN
     Indication: MYALGIA
  3. DICLOFENAC [Suspect]
     Active Substance: DICLOFENAC
     Indication: MYALGIA
  4. DICLOFENAC [Suspect]
     Active Substance: DICLOFENAC
     Indication: BACK PAIN
  5. IBUMETIN [Suspect]
     Active Substance: IBUPROFEN
     Indication: BACK PAIN
  6. IBUMETIN [Suspect]
     Active Substance: IBUPROFEN
     Indication: MUSCULOSKELETAL PAIN
     Dosage: 3 DF, UNK
     Route: 065

REACTIONS (12)
  - Osteochondrosis [Recovering/Resolving]
  - Blood pressure increased [Recovering/Resolving]
  - Apathy [Recovering/Resolving]
  - Blood creatinine increased [Recovering/Resolving]
  - Pain [Recovering/Resolving]
  - Blood urea increased [Recovering/Resolving]
  - Kidney enlargement [Recovering/Resolving]
  - Hyperkalaemia [Recovering/Resolving]
  - Disorientation [Recovering/Resolving]
  - Anuria [Recovering/Resolving]
  - Acute kidney injury [Recovering/Resolving]
  - Polyuria [Recovering/Resolving]
